FAERS Safety Report 7527161-X (Version None)
Quarter: 2011Q2

REPORT INFORMATION
  Report Type: 
  Country: None (occurrence: None)
  Receive Date: 20110607
  Receipt Date: 20110526
  Transmission Date: 20111010
  Serious: Yes (Hospitalization)
  Sender: FDA-Public Use
  Company Number: US-BIOGENIDEC-2011BI002654

PATIENT
  Age: 40 Year
  Sex: Female

DRUGS (3)
  1. AVONEX [Suspect]
     Indication: MULTIPLE SCLEROSIS
     Route: 030
     Dates: start: 20070101
  2. AVONEX [Suspect]
     Route: 030
     Dates: start: 20090720
  3. AVONEX [Suspect]
     Route: 030
     Dates: start: 19961124, end: 20061224

REACTIONS (4)
  - TRAUMATIC BRAIN INJURY [None]
  - ROAD TRAFFIC ACCIDENT [None]
  - COMA [None]
  - MEMORY IMPAIRMENT [None]
